FAERS Safety Report 19364206 (Version 1)
Quarter: 2021Q2

REPORT INFORMATION
  Report Type: Spontaneous
  Country: US (occurrence: US)
  Receive Date: 20210602
  Receipt Date: 20210602
  Transmission Date: 20210717
  Serious: Yes (Hospitalization)
  Sender: FDA-Public Use
  Company Number: None

PATIENT
  Age: 66 Year
  Sex: Female
  Weight: 67.95 kg

DRUGS (10)
  1. VITAMIN B [Concomitant]
     Active Substance: VITAMIN B
  2. VITAMIN E [Concomitant]
     Active Substance: .ALPHA.-TOCOPHEROL
  3. MITREX 50MG PRN MIGRAINE [Concomitant]
  4. KLONOPIN 0.5MG PR [Concomitant]
  5. MULTIVITAMIN QD [Concomitant]
  6. METHIMAZOLE 5MG TABLET [Suspect]
     Active Substance: METHIMAZOLE
     Indication: BASEDOW^S DISEASE
     Dosage: ?          QUANTITY:90 TABLET(S);?
     Route: 048
     Dates: start: 20210526, end: 20210601
  7. CITALOPRAM 20MG QD [Concomitant]
  8. MELATONIN 5MG NIGHTLY [Concomitant]
  9. VITAMIN D [Concomitant]
     Active Substance: VITAMIN D NOS
  10. LORATADINE. [Concomitant]
     Active Substance: LORATADINE

REACTIONS (2)
  - Restlessness [None]
  - Tremor [None]

NARRATIVE: CASE EVENT DATE: 20210528
